FAERS Safety Report 13055974 (Version 1)
Quarter: 2016Q4

REPORT INFORMATION
  Report Type: Report from Study
  Country: PT (occurrence: PT)
  Receive Date: 20161222
  Receipt Date: 20161222
  Transmission Date: 20170207
  Serious: Yes (Other)
  Sender: FDA-Public Use
  Company Number: PT-IPCA LABORATORIES LIMITED-IPC201612-001038

PATIENT
  Age: 22 Year
  Sex: Female

DRUGS (7)
  1. METHYLPREDNISOLONE. [Suspect]
     Active Substance: METHYLPREDNISOLONE
  2. DESLORATADINE. [Suspect]
     Active Substance: DESLORATADINE
  3. PROMETHAZINE [Suspect]
     Active Substance: PROMETHAZINE\PROMETHAZINE HYDROCHLORIDE
  4. CETIRIZINE [Suspect]
     Active Substance: CETIRIZINE HYDROCHLORIDE
  5. DEFLAZACORT [Suspect]
     Active Substance: DEFLAZACORT
  6. LORATADINE. [Suspect]
     Active Substance: LORATADINE
  7. HYDROCORTISONE. [Suspect]
     Active Substance: HYDROCORTISONE

REACTIONS (3)
  - Urticaria [Recovered/Resolved]
  - Drug hypersensitivity [Recovered/Resolved]
  - Angioedema [Recovered/Resolved]
